FAERS Safety Report 6080386-5 (Version None)
Quarter: 2009Q1

REPORT INFORMATION
  Report Type: 
  Country: None (occurrence: None)
  Receive Date: 20090217
  Receipt Date: 20090209
  Transmission Date: 20090719
  Serious: Yes (Hospitalization, Disabling, Other)
  Sender: FDA-Public Use
  Company Number: US-MERCK-0612USA03079

PATIENT
  Age: 56 Year
  Sex: Female

DRUGS (5)
  1. FOSAMAX [Suspect]
     Indication: OSTEOPOROSIS PROPHYLAXIS
     Route: 048
     Dates: start: 20010115, end: 20050428
  2. FOSAMAX [Suspect]
     Route: 048
     Dates: start: 20000103, end: 20010114
  3. FOSAMAX [Suspect]
     Indication: OSTEOPENIA
     Route: 048
     Dates: start: 20010115, end: 20050428
  4. FOSAMAX [Suspect]
     Route: 048
     Dates: start: 20000103, end: 20010114
  5. ACTONEL [Suspect]
     Route: 065
     Dates: start: 20050428, end: 20060707

REACTIONS (21)
  - ABDOMINAL ADHESIONS [None]
  - ANORGASMIA [None]
  - ANXIETY [None]
  - APPENDICITIS [None]
  - ASTHMA [None]
  - BILIARY COLIC [None]
  - BLOOD CHOLESTEROL INCREASED [None]
  - CARDIAC DISORDER [None]
  - CHEST DISCOMFORT [None]
  - CHEST PAIN [None]
  - CHOLECYSTITIS CHRONIC [None]
  - DENTAL CARIES [None]
  - HAND FRACTURE [None]
  - HERPES SIMPLEX [None]
  - HYPERSENSITIVITY [None]
  - LIMB INJURY [None]
  - OSTEONECROSIS [None]
  - OVERDOSE [None]
  - PAIN [None]
  - SKIN LACERATION [None]
  - TREMOR [None]
